FAERS Safety Report 6884749-7 (Version None)
Quarter: 2010Q3

REPORT INFORMATION
  Report Type: 
  Country: None (occurrence: None)
  Receive Date: 20100729
  Receipt Date: 20070730
  Transmission Date: 20110219
  Serious: No
  Sender: FDA-Public Use
  Company Number: US-PFIZER INC-2007063503

PATIENT
  Sex: Male
  Weight: 90.9 kg

DRUGS (3)
  1. CELEBREX [Suspect]
     Indication: ARTHRITIS
     Dates: start: 19980101, end: 20070710
  2. ZANTAC [Concomitant]
  3. DRUG, UNSPECIFIED [Concomitant]
     Indication: PROSTATOMEGALY

REACTIONS (2)
  - DYSPNOEA [None]
  - OEDEMA PERIPHERAL [None]
